FAERS Safety Report 5447615-X (Version None)
Quarter: 2007Q3

REPORT INFORMATION
  Report Type: 
  Country: None (occurrence: None)
  Receive Date: 20070905
  Receipt Date: 20070821
  Transmission Date: 20080115
  Serious: Yes (Other)
  Sender: FDA-Public Use
  Company Number: 2007VX002163

PATIENT
  Age: 36 Year
  Sex: Female

DRUGS (4)
  1. DALMADORM           (FLURAZEPAM HYDROCHLORIDE) [Suspect]
     Indication: SLEEP DISORDER
     Dosage: 1 DF; QW; PO
     Route: 048
     Dates: end: 20070410
  2. CITALOPRAM HYDROBROMIDE [Suspect]
     Dosage: 20 MG; QD; PO
     Route: 048
  3. TRUXAL               (CHLORPROTHIXENE HYDROCHLORIDE) [Suspect]
     Dosage: 15 MG; QID; PO
     Route: 048
  4. ZOLPIDEM TARTRATE [Suspect]
     Indication: SLEEP DISORDER
     Dosage: 10 MG; QD; PO
     Route: 048
     Dates: start: 20020410, end: 20070629

REACTIONS (4)
  - ABORTION INDUCED [None]
  - AMNIOTIC FLUID VOLUME INCREASED [None]
  - CONGENITAL ANOMALY [None]
  - DRUG EXPOSURE DURING PREGNANCY [None]
